FAERS Safety Report 5455486-0 (Version None)
Quarter: 2007Q3

REPORT INFORMATION
  Report Type: 
  Country: None (occurrence: None)
  Receive Date: 20070918
  Receipt Date: 20070702
  Transmission Date: 20080115
  Serious: Yes (Other)
  Sender: FDA-Public Use
  Company Number: US-ASTRAZENECA-2006UW21426

PATIENT
  Age: 38 Year
  Sex: Female
  Weight: 68.6 kg

DRUGS (8)
  1. SEROQUEL [Suspect]
     Indication: BIPOLAR DISORDER
     Route: 048
  2. SEROQUEL [Suspect]
     Indication: DEPRESSION
     Route: 048
  3. RISPERDAL [Concomitant]
  4. ZYPREXA [Concomitant]
  5. EFFEXOR XR [Concomitant]
  6. PAXIL [Concomitant]
  7. TRAZODONE HCL [Concomitant]
  8. PROZAC [Concomitant]

REACTIONS (2)
  - DIABETES MELLITUS [None]
  - PANCREATITIS [None]
